FAERS Safety Report 9319694 (Version 6)
Quarter: 2014Q1

REPORT INFORMATION
  Report Type: Spontaneous
  Country: US (occurrence: US)
  Receive Date: 20130530
  Receipt Date: 20140224
  Transmission Date: 20141002
  Serious: No
  Sender: FDA-Public Use
  Company Number: US-009507513-1305USA005213

PATIENT
  Age: 30 Year
  Sex: Female
  Weight: 66.21 kg

DRUGS (1)
  1. IMPLANON [Suspect]
     Indication: CONTRACEPTION
     Dosage: 1 DF, UNK
     Route: 059
     Dates: start: 20120604

REACTIONS (4)
  - Anaemia [Unknown]
  - Pain in extremity [Unknown]
  - Medical device complication [Unknown]
  - Menstruation delayed [Unknown]
